FAERS Safety Report 8813163 (Version 1)
Quarter: 2012Q4

REPORT INFORMATION
  Report Type: 
  Country: US (occurrence: US)
  Receive Date: 20120927
  Receipt Date: 20120927
  Transmission Date: 20130627
  Serious: No
  Sender: FDA-Public Use
  Company Number: US-AMGEN-USASP2012033725

PATIENT
  Sex: Female

DRUGS (1)
  1. PROLIA [Suspect]
     Indication: OSTEOPOROSIS POSTMENOPAUSAL
     Dosage: 60 mg, q6mo
     Dates: start: 20120222

REACTIONS (8)
  - Arthralgia [Unknown]
  - Pain in jaw [Unknown]
  - Fatigue [Unknown]
  - Decreased appetite [Unknown]
  - Mobility decreased [Unknown]
  - Blood glucose fluctuation [Unknown]
  - General physical health deterioration [Unknown]
  - Back pain [Unknown]
